FAERS Safety Report 23205738 (Version 2)
Quarter: 2023Q4

REPORT INFORMATION
  Report Type: Spontaneous
  Country: DE (occurrence: DE)
  Receive Date: 20231120
  Receipt Date: 20231201
  Transmission Date: 20240110
  Serious: Yes (Other)
  Sender: FDA-Public Use
  Company Number: DE-OTSUKA-2023_029673

PATIENT
  Age: 42 Year
  Sex: Female
  Weight: 77.5 kg

DRUGS (7)
  1. TOLVAPTAN [Suspect]
     Active Substance: TOLVAPTAN
     Indication: Congenital cystic kidney disease
     Dosage: 45 MG, QD
     Route: 065
     Dates: start: 20230630, end: 20231111
  2. TOLVAPTAN [Suspect]
     Active Substance: TOLVAPTAN
     Dosage: 15 MG
     Route: 065
     Dates: start: 20230630, end: 20231111
  3. RAMIPRIL AL [Concomitant]
     Indication: Product used for unknown indication
     Dosage: 1 DF, QD
     Route: 065
     Dates: start: 20230731
  4. RAMIPRIL AL [Concomitant]
     Dosage: UNK
     Route: 065
  5. OPIPRAMOL [Concomitant]
     Active Substance: OPIPRAMOL
     Indication: Product used for unknown indication
     Dosage: 0.5 DF, QD
     Route: 065
     Dates: start: 20230925
  6. INDAPAMIDE [Concomitant]
     Active Substance: INDAPAMIDE
     Indication: Blood pressure measurement
     Dosage: UNK (100 PIECES RET, 1-0-0-0 )
     Route: 065
     Dates: start: 20230630, end: 20230731
  7. RAMIPRIL [Concomitant]
     Active Substance: RAMIPRIL
     Indication: Product used for unknown indication
     Dosage: UNK (100 PIECES TAB,1-0-0-0)
     Route: 065
     Dates: start: 20190719, end: 20230730

REACTIONS (1)
  - Hepatic enzyme increased [Not Recovered/Not Resolved]
